FAERS Safety Report 8069930-6 (Version None)
Quarter: 2012Q1

REPORT INFORMATION
  Report Type: 
  Country: None (occurrence: None)
  Receive Date: 20120119
  Receipt Date: 20111230
  Transmission Date: 20120608
  Serious: Yes (Other)
  Sender: FDA-Public Use
  Company Number: HRA-MET20120001

PATIENT
  Age: 52 Year
  Sex: Male

DRUGS (16)
  1. ANTIBIOTICS (NO INGREDIENTS/SUBSTANCES) [Concomitant]
  2. AMLODIPINE [Concomitant]
  3. KETOCONAZOLE [Concomitant]
  4. WARFARIN SODIUM [Concomitant]
  5. FUROSEMIDE [Concomitant]
  6. INSULIN [Concomitant]
  7. HYDRALAZINE HCL [Concomitant]
  8. METFORMIN HCL [Concomitant]
  9. METOPROLOL [Concomitant]
  10. ACETYLSALICYLIC ACID (POTASSIUM CHLORIDE) [Concomitant]
  11. METYRAPONE (METYRAPONE) [Suspect]
     Indication: PRODUCT USED FOR UNKNOWN INDICATION
  12. RISEDRONATE SODIUM [Concomitant]
  13. SPIRONOLACTONE [Concomitant]
  14. VALSARTAN [Concomitant]
  15. OXYCODONE W/PARACETAMOL (OXYCODONE, PARACETAMOL) [Concomitant]
  16. POTASSIUM CHLORIDE [Concomitant]

REACTIONS (2)
  - MENTAL STATUS CHANGES [None]
  - CORTISOL FREE URINE DECREASED [None]
